FAERS Safety Report 8242126-0 (Version None)
Quarter: 2012Q1

REPORT INFORMATION
  Report Type: 
  Country: None (occurrence: None)
  Receive Date: 20120314
  Receipt Date: 20100505
  Transmission Date: 20120608
  Serious: No
  Sender: FDA-Public Use
  Company Number: PHHY2010US29896

PATIENT
  Age: 36 Year
  Sex: Male

DRUGS (5)
  1. SEROQUEL [Concomitant]
  2. LEXAPRO [Concomitant]
  3. LAMICTAL [Concomitant]
  4. FANAPT [Suspect]
     Indication: BIPOLAR DISORDER
     Dosage: 6 MG, BID, ORAL
     Route: 048
     Dates: start: 20100420
  5. LITHIUM CARBONATE [Concomitant]

REACTIONS (3)
  - SEDATION [None]
  - APHASIA [None]
  - MEMORY IMPAIRMENT [None]
